FAERS Safety Report 15675171 (Version 2)
Quarter: 2018Q4

REPORT INFORMATION
  Report Type: Report from Study
  Country: IL (occurrence: IL)
  Receive Date: 20181130
  Receipt Date: 20181210
  Transmission Date: 20190205
  Serious: Yes (Other)
  Sender: FDA-Public Use
  Company Number: IL-ROCHE-2221785

PATIENT
  Age: 61 Year
  Sex: Female
  Weight: 81 kg

DRUGS (4)
  1. OPTALGIN [Concomitant]
     Active Substance: METAMIZOLE
     Route: 048
     Dates: start: 20180911
  2. ATEZOLIZUMAB. [Suspect]
     Active Substance: ATEZOLIZUMAB
     Indication: RENAL CELL CARCINOMA
     Dosage: ON 05/NOV/2018, AT 12 12 SHE RECEIVED HER MOST RECENT DOSE OF ATEZOLIZUMAB PRIOR TO THE AE AND SAE O
     Route: 042
     Dates: start: 20180502
  3. RAMIPRIL. [Concomitant]
     Active Substance: RAMIPRIL
     Route: 048
     Dates: start: 2010
  4. ELATROL [Concomitant]
     Route: 048
     Dates: start: 2016

REACTIONS (1)
  - Type 2 diabetes mellitus [Not Recovered/Not Resolved]

NARRATIVE: CASE EVENT DATE: 20181015
